FAERS Safety Report 9213315 (Version 1)
Quarter: 2013Q1

REPORT INFORMATION
  Report Type: Spontaneous
  Country: US (occurrence: None)
  Receive Date: 20120820
  Receipt Date: 20120820
  Transmission Date: 20140127
  Serious: No
  Sender: FDA-Public Use
  Company Number: 1000031264

PATIENT
  Age: 25 Year
  Sex: Male

DRUGS (4)
  1. VIBRYD [Suspect]
     Indication: DEPRESSION
     Dosage: 20 MG (20 MG , 1 IN 1 D) , ORAL
     Route: 048
     Dates: start: 201205
  2. OXYCODONE (OXYCODONE) [Concomitant]
  3. SOMA (CARISOPRODOL) (CARISPRODOL) [Concomitant]
  4. XANAX (ALPRAZOLAM) (ALPRAZOLAM) [Concomitant]

REACTIONS (5)
  - Abnormal dreams [None]
  - Insomnia [None]
  - Hallucination, visual [None]
  - Muscle spasms [None]
  - Dysphemia [None]
